FAERS Safety Report 10361984 (Version 1)
Quarter: 2014Q1

REPORT INFORMATION
  Report Type: Spontaneous
  Country: US (occurrence: None)
  Receive Date: 20140306
  Receipt Date: 20140306
  Transmission Date: 20141002
  Serious: Yes (Other)
  Sender: FDA-Public Use
  Company Number: 163-21880-13074644

PATIENT
  Age: 79 Year
  Sex: Female

DRUGS (8)
  1. REVLIMID [Suspect]
     Indication: MYELODYSPLASTIC SYNDROME
     Route: 048
     Dates: start: 20110720
  2. LOTREL (LOTREL) (CAPSULES) [Concomitant]
  3. METOPROLOL TARTRATE (METOPROLOL TARTRATE) (TABLETS) (METOPROLOL TARTRATE) [Concomitant]
  4. HYDROCHLOROTHIAZIDE (HYDROCHLOROTHIAZIDE) (TABLETS) [Concomitant]
  5. ASPIRIN (ACETYLSALICYLIC ACID) (TABLETS) [Concomitant]
  6. ALLOPURINOL (ALLOPURINOL) (TABLETS) [Concomitant]
  7. CALCIUM (CALCIUM) (TABLETS) [Concomitant]
  8. FISH OIL (FISH OIL) (CAPSULES) [Concomitant]

REACTIONS (1)
  - Compression fracture [None]
